FAERS Safety Report 21459792 (Version 1)
Quarter: 2022Q4

REPORT INFORMATION
  Report Type: Spontaneous
  Country: ES (occurrence: ES)
  Receive Date: 20221014
  Receipt Date: 20221014
  Transmission Date: 20230113
  Serious: Yes (Hospitalization, Other)
  Sender: FDA-Public Use
  Company Number: None

PATIENT
  Age: 76 Year
  Sex: Female

DRUGS (20)
  1. HYDROCHLOROTHIAZIDE\OLMESARTAN MEDOXOMIL [Interacting]
     Active Substance: HYDROCHLOROTHIAZIDE\OLMESARTAN MEDOXOMIL
     Indication: Essential hypertension
     Dosage: 1 DF
     Route: 048
     Dates: start: 20220215, end: 2022
  2. FUROSEMIDE [Suspect]
     Active Substance: FUROSEMIDE
     Indication: Essential hypertension
     Dosage: 40 MG A-DE
     Route: 048
     Dates: start: 20220818, end: 2022
  3. ARCOXIA [Suspect]
     Active Substance: ETORICOXIB
     Indication: Sciatica
     Dosage: 90 MG A-DE
     Route: 048
     Dates: start: 20220421, end: 2022
  4. UROTROL [PROPIVERINE HYDROCHLORIDE] [Concomitant]
     Indication: Urinary incontinence
     Dosage: 4 MG DE
     Route: 048
     Dates: start: 20201201
  5. PRADAXA [Concomitant]
     Active Substance: DABIGATRAN ETEXILATE MESYLATE
     Indication: Atrial fibrillation
     Dosage: 110 MG, BID
     Route: 048
     Dates: start: 20220216
  6. BIKTARVY [Concomitant]
     Active Substance: BICTEGRAVIR SODIUM\EMTRICITABINE\TENOFOVIR ALAFENAMIDE FUMARATE
     Indication: HIV infection
     Dosage: 1 DF
     Route: 048
     Dates: start: 20210709
  7. QUETIAPINE FUMARATE [Concomitant]
     Active Substance: QUETIAPINE FUMARATE
     Indication: Anxiety
     Dosage: 25 MG
     Route: 048
     Dates: start: 20220614
  8. CITICOLINE [Concomitant]
     Active Substance: CITICOLINE
     Indication: Organic brain syndrome
     Dosage: 1000 MG DECE
     Route: 048
     Dates: start: 20220713
  9. AMLODIPINO SANDOZ [Concomitant]
     Indication: Essential hypertension
     Dosage: 10 MG
     Route: 048
     Dates: start: 20220110
  10. LORATADINA SANDOZ [Concomitant]
     Indication: Bronchitis
     Dosage: 10 MG
     Route: 048
     Dates: start: 20171222
  11. CALCIUM CARBONATE\CHOLECALCIFEROL [Concomitant]
     Active Substance: CALCIUM CARBONATE\CHOLECALCIFEROL
     Indication: Osteoarthritis
     Dosage: 1 DF COMP CE
     Route: 048
     Dates: start: 20220412
  12. PYRIDOXINE HYDROCHLORIDE [Concomitant]
     Active Substance: PYRIDOXINE HYDROCHLORIDE
     Indication: Vitamin B6 deficiency
     Dosage: 300 MG
     Route: 048
     Dates: start: 20220714
  13. THIAMINE HYDROCHLORIDE [Concomitant]
     Active Substance: THIAMINE HYDROCHLORIDE
     Indication: Vitamin B1 decreased
     Dosage: 300 MG DE
     Route: 048
     Dates: start: 20220714
  14. FERBISOL [Concomitant]
     Indication: Iron deficiency anaemia
     Dosage: 100 MG, BID
     Route: 048
     Dates: start: 20220713
  15. FOLIC ACID [Concomitant]
     Active Substance: FOLIC ACID
     Indication: Anaemia folate deficiency
     Dosage: 5 MG, QD
     Route: 048
     Dates: start: 20220714
  16. EFFERALGAN [Concomitant]
     Active Substance: ACETAMINOPHEN
     Indication: Essential hypertension
     Dosage: 1 G DECOCE
     Route: 048
     Dates: start: 20220211
  17. ALOPURINOL CINFA [Concomitant]
     Indication: Product used for unknown indication
     Dosage: 100 MG
     Route: 048
     Dates: start: 20220624
  18. CALCIUM\VITAMIN D [Concomitant]
     Active Substance: CALCIUM\VITAMIN D
     Indication: Osteoarthritis
     Dosage: 1.0 COMP CE
     Route: 048
     Dates: start: 20220412
  19. TRAZODONE HYDROCHLORIDE [Concomitant]
     Active Substance: TRAZODONE HYDROCHLORIDE
     Indication: Insomnia
     Dosage: 150 MG
     Route: 048
     Dates: start: 20220324
  20. GABAPENTINA SANDOZ [Concomitant]
     Indication: Senile dementia
     Dosage: 300 MG
     Route: 048
     Dates: start: 20220615

REACTIONS (3)
  - Acute kidney injury [Recovering/Resolving]
  - Hypotension [Recovering/Resolving]
  - Labelled drug-drug interaction medication error [Recovering/Resolving]

NARRATIVE: CASE EVENT DATE: 20220922
